FAERS Safety Report 10723227 (Version 1)
Quarter: 2015Q1

REPORT INFORMATION
  Report Type: Spontaneous
  Country: US (occurrence: US)
  Receive Date: 20150120
  Receipt Date: 20150120
  Transmission Date: 20150721
  Serious: Yes (Other)
  Sender: FDA-Public Use
  Company Number: US-BANPHARM-20153360

PATIENT
  Age: 6 Year
  Sex: Female

DRUGS (2)
  1. ETHOSUXIMIDE UNKNOWN PRODUCT [Suspect]
     Active Substance: ETHOSUXIMIDE
     Indication: PETIT MAL EPILEPSY
  2. HYDROCORTISONE. [Concomitant]
     Active Substance: HYDROCORTISONE

REACTIONS (11)
  - Generalised tonic-clonic seizure [None]
  - Body mass index increased [None]
  - Blood testosterone increased [Recovered/Resolved]
  - Hyperandrogenism [Recovered/Resolved]
  - Blood testosterone decreased [None]
  - Blood androstenedione increased [Recovered/Resolved]
  - Bone disorder [Recovered/Resolved]
  - 17-hydroxyprogesterone increased [Recovered/Resolved]
  - Cushingoid [None]
  - Blood androstenedione decreased [None]
  - Blood cortisol decreased [Recovered/Resolved]
